FAERS Safety Report 16264372 (Version 2)
Quarter: 2020Q2

REPORT INFORMATION
  Report Type: Spontaneous
  Country: US (occurrence: US)
  Receive Date: 20190502
  Receipt Date: 20200513
  Transmission Date: 20200713
  Serious: No
  Sender: FDA-Public Use
  Company Number: US-009507513-1904USA012636

PATIENT
  Age: 76 Year
  Sex: Male

DRUGS (8)
  1. CEFTAROLINE FOSAMIL ACETATE [Concomitant]
     Active Substance: CEFTAROLINE FOSAMIL
     Indication: STAPHYLOCOCCAL BACTERAEMIA
  2. RIFAMPIN. [Concomitant]
     Active Substance: RIFAMPIN
     Indication: STAPHYLOCOCCAL BACTERAEMIA
  3. LINEZOLID. [Concomitant]
     Active Substance: LINEZOLID
     Indication: STAPHYLOCOCCAL BACTERAEMIA
  4. CUBICIN [Suspect]
     Active Substance: DAPTOMYCIN
     Indication: INFECTIVE AORTITIS
     Dosage: UNK
  5. CUBICIN [Suspect]
     Active Substance: DAPTOMYCIN
     Indication: STAPHYLOCOCCAL BACTERAEMIA
  6. RIFAMPIN. [Concomitant]
     Active Substance: RIFAMPIN
     Indication: INFECTIVE AORTITIS
     Dosage: UNK
  7. LINEZOLID. [Concomitant]
     Active Substance: LINEZOLID
     Indication: INFECTIVE AORTITIS
     Dosage: UNK
  8. CEFTAROLINE FOSAMIL ACETATE [Concomitant]
     Active Substance: CEFTAROLINE FOSAMIL
     Indication: INFECTIVE AORTITIS
     Dosage: UNK

REACTIONS (1)
  - Off label use [Unknown]
